FAERS Safety Report 10056974 (Version 2)
Quarter: 2014Q2

REPORT INFORMATION
  Report Type: Spontaneous
  Country: US (occurrence: US)
  Receive Date: 20140403
  Receipt Date: 20140403
  Transmission Date: 20141212
  Serious: Yes (Death, Hospitalization)
  Sender: FDA-Public Use
  Company Number: US-LUNDBECK-DKLU1068059

PATIENT
  Age: 1 Year
  Sex: Male

DRUGS (6)
  1. SABRIL     (TABLET) [Suspect]
     Indication: INFANTILE SPASMS
     Route: 048
     Dates: start: 20091119
  2. SABRIL     (TABLET) [Suspect]
     Route: 048
  3. LEVETIRACETAM [Concomitant]
     Indication: CONVULSION
     Route: 048
  4. CLONAZEPAM [Concomitant]
     Indication: CONVULSION
     Route: 048
  5. PRILOSEC [Concomitant]
     Indication: PRODUCT USED FOR UNKNOWN INDICATION
     Route: 048
  6. DUONEB [Concomitant]
     Indication: PRODUCT USED FOR UNKNOWN INDICATION
     Route: 048

REACTIONS (7)
  - Death [Fatal]
  - Hypoxia [Unknown]
  - Hypotension [Unknown]
  - Vomiting [Unknown]
  - Convulsion [Unknown]
  - Dyskinesia [Unknown]
  - Pneumonia [Unknown]
